FAERS Safety Report 23323059 (Version 1)
Quarter: 2023Q4

REPORT INFORMATION
  Report Type: Spontaneous
  Country: US (occurrence: None)
  Receive Date: 20231220
  Receipt Date: 20231220
  Transmission Date: 20240110
  Serious: No
  Sender: FDA-Public Use
  Company Number: US-ROCHE-3205302

PATIENT
  Age: 65 Year
  Sex: Male
  Weight: 76.272 kg

DRUGS (3)
  1. RITUXAN [Suspect]
     Active Substance: RITUXIMAB
     Indication: Connective tissue disorder
     Dosage: EVERY 6 MONTHS, LAST DOSE OF RITUXAN 22/SEP/2023
     Route: 041
     Dates: start: 20221007
  2. DIPHENHYDRAMINE [Concomitant]
     Active Substance: DIPHENHYDRAMINE
     Dosage: ADMINISTER BY SLOW IV PUSH OVER 1-2 MINUTES, AT LEAST 30 MINUTES PRIOR TO EACH INFUSION.
     Route: 042
  3. MAPAP [Concomitant]
     Active Substance: ACETAMINOPHEN
     Dosage: 2 TABLETS (1000MG) BY MOUTH 30 MINUTES PRIOR TO EACH INFUSION
     Route: 048

REACTIONS (5)
  - Dyspnoea [Recovered/Resolved]
  - Off label use [Unknown]
  - Illness [Unknown]
  - Respiratory tract infection [Unknown]
  - Urinary tract infection [Unknown]

NARRATIVE: CASE EVENT DATE: 20221018
